FAERS Safety Report 8448503-7 (Version None)
Quarter: 2012Q2

REPORT INFORMATION
  Report Type: 
  Country: None (occurrence: None)
  Receive Date: 20120619
  Receipt Date: 20120606
  Transmission Date: 20120825
  Serious: Yes (Hospitalization)
  Sender: FDA-Public Use
  Company Number: ES-ROCHE-1078668

PATIENT
  Age: 76 Year
  Sex: Female

DRUGS (3)
  1. HEPARIN [Concomitant]
     Dates: start: 20090704
  2. ALTEPLASE [Suspect]
     Indication: ISCHAEMIC STROKE
     Route: 042
     Dates: start: 20090702
  3. ACETYLSALICYLIC ACID SRT [Concomitant]
     Dates: start: 20090704

REACTIONS (6)
  - PULMONARY EMBOLISM [None]
  - BRADYCARDIA [None]
  - PALLOR [None]
  - HYPOXIA [None]
  - LOSS OF CONSCIOUSNESS [None]
  - HAEMODYNAMIC INSTABILITY [None]
